FAERS Safety Report 8616459 (Version 4)
Quarter: 2014Q2

REPORT INFORMATION
  Report Type: Spontaneous
  Country: US (occurrence: US)
  Receive Date: 20120615
  Receipt Date: 20140522
  Transmission Date: 20141212
  Serious: Yes (Other)
  Sender: FDA-Public Use
  Company Number: US-ASTRAZENECA-2012SE36179

PATIENT
  Age: 19544 Day
  Sex: Female

DRUGS (26)
  1. NEXIUM [Suspect]
     Indication: DYSPEPSIA
     Dosage: ONCE OR SOMETIMES TWICE
     Route: 048
     Dates: start: 2008, end: 2011
  2. NEXIUM [Suspect]
     Indication: GASTROOESOPHAGEAL REFLUX DISEASE
     Dosage: ONCE OR SOMETIMES TWICE
     Route: 048
     Dates: start: 2008, end: 2011
  3. NEXIUM [Suspect]
     Indication: DYSPEPSIA
     Route: 048
     Dates: start: 2008, end: 2011
  4. NEXIUM [Suspect]
     Indication: GASTROOESOPHAGEAL REFLUX DISEASE
     Route: 048
     Dates: start: 2008, end: 2011
  5. NEXIUM [Suspect]
     Indication: DYSPEPSIA
     Route: 048
     Dates: start: 20091019
  6. NEXIUM [Suspect]
     Indication: GASTROOESOPHAGEAL REFLUX DISEASE
     Route: 048
     Dates: start: 20091019
  7. OMEPRAZOLE [Suspect]
     Indication: GASTROOESOPHAGEAL REFLUX DISEASE
     Route: 048
     Dates: start: 20120405
  8. CRESTOR [Concomitant]
     Indication: BLOOD CHOLESTEROL INCREASED
     Dates: start: 20120313
  9. KOMBIGLYZE [Concomitant]
     Dosage: 5-500MG
     Dates: start: 20120118
  10. EXFORGE [Concomitant]
     Indication: HYPERTENSION
  11. LYRICA [Concomitant]
     Indication: NERVOUS SYSTEM DISORDER
  12. FRUSEMIDE [Concomitant]
     Dates: start: 20120417
  13. CELEBREX [Concomitant]
     Indication: OSTEOARTHRITIS
     Dates: start: 20120625
  14. TIZANIDINE [Concomitant]
     Indication: MUSCLE RELAXANT THERAPY
  15. VICODIN [Concomitant]
     Dosage: 5-500MG EVERY 6 HRS AS NEEDED
     Route: 048
     Dates: start: 20120814
  16. AMITIZA [Concomitant]
     Dates: start: 20120118
  17. BUPROPION SR [Concomitant]
     Dates: start: 20120118
  18. CARISOPRODOL [Concomitant]
     Dates: start: 20120108
  19. CEFDINIR [Concomitant]
     Dates: start: 20120625
  20. CYMBALTA [Concomitant]
     Dates: start: 20120108
  21. EXFORGE HCT [Concomitant]
     Dosage: 5-160-12.5MG
     Dates: start: 20120108
  22. GABAPENTIN [Concomitant]
     Dates: start: 20120313
  23. METHOCARBAMOL [Concomitant]
     Dates: start: 20120625
  24. NAPROXEN [Concomitant]
     Dates: start: 20120118
  25. SINGULAIR [Concomitant]
     Indication: MULTIPLE ALLERGIES
     Dates: start: 20120118
  26. SEROQUEL XR [Concomitant]
     Dates: start: 20120202

REACTIONS (15)
  - Musculoskeletal disorder [Unknown]
  - Osteoporosis [Unknown]
  - Multiple fractures [Unknown]
  - Lower limb fracture [Unknown]
  - Carpal tunnel syndrome [Unknown]
  - Bone loss [Unknown]
  - Arthritis [Unknown]
  - Bone pain [Unknown]
  - Diabetes mellitus [Unknown]
  - Rheumatoid arthritis [Unknown]
  - Osteoarthritis [Unknown]
  - Onychomycosis [Unknown]
  - Tibia fracture [Unknown]
  - Depression [Unknown]
  - Rotator cuff syndrome [Unknown]
